FAERS Safety Report 8398844-7 (Version None)
Quarter: 2012Q1

REPORT INFORMATION
  Report Type: 
  Country: None (occurrence: None)
  Receive Date: 20120323
  Receipt Date: 20111129
  Transmission Date: 20120608
  Serious: Yes (Hospitalization)
  Sender: FDA-Public Use
  Company Number: 163-21880-11120092

PATIENT
  Age: 84 Year
  Sex: Female

DRUGS (1)
  1. REVLIMID [Suspect]
     Indication: MULTIPLE MYELOMA
     Dosage: 5 MG, QD, PO
     Route: 048
     Dates: start: 20110516

REACTIONS (3)
  - CONDITION AGGRAVATED [None]
  - CHEST PAIN [None]
  - PSORIASIS [None]
